FAERS Safety Report 5677131-1 (Version None)
Quarter: 2008Q1

REPORT INFORMATION
  Report Type: 
  Country: None (occurrence: None)
  Receive Date: 20080324
  Receipt Date: 20080324
  Transmission Date: 20080703
  Serious: Yes (Hospitalization)
  Sender: FDA-Public Use
  Company Number: None

PATIENT

DRUGS (2)
  1. HEPARIN [Suspect]
     Indication: PROPHYLAXIS
     Dosage: 5000 UNITS Q12 OR 8 HR SQ
     Route: 058
  2. HEPARIN [Suspect]
     Dosage: HEPARIN DRIP IV DRIP

REACTIONS (1)
  - HEPARIN-INDUCED THROMBOCYTOPENIA [None]
